FAERS Safety Report 9241624 (Version 2)
Quarter: 2013Q2

REPORT INFORMATION
  Report Type: Report from Study
  Country: US (occurrence: US)
  Receive Date: 20130419
  Receipt Date: 20130522
  Transmission Date: 20140414
  Serious: Yes (Death)
  Sender: FDA-Public Use
  Company Number: PHEH2013US008678

PATIENT
  Sex: Female

DRUGS (2)
  1. GLEEVEC [Suspect]
     Indication: CHRONIC MYELOID LEUKAEMIA
     Dosage: 400 MG, DAILY
     Route: 048
     Dates: start: 20110202, end: 20130313
  2. TARCEVA [Concomitant]
     Indication: LUNG NEOPLASM MALIGNANT
     Dosage: 100 MG, QD
     Dates: start: 20121012, end: 20130304

REACTIONS (2)
  - Lung neoplasm malignant [Fatal]
  - Second primary malignancy [Fatal]
